FAERS Safety Report 17019802 (Version 1)
Quarter: 2019Q4

REPORT INFORMATION
  Report Type: Spontaneous
  Country: IN (occurrence: IN)
  Receive Date: 20191112
  Receipt Date: 20191112
  Transmission Date: 20200122
  Serious: Yes (Death, Hospitalization, Other)
  Sender: FDA-Public Use
  Company Number: IN-HETERO-HET2019IN01542

PATIENT
  Age: 82 Year
  Sex: Male

DRUGS (1)
  1. LINEZOLID. [Suspect]
     Active Substance: LINEZOLID
     Indication: POST PROCEDURAL INFECTION
     Dosage: 600 MG, BID
     Route: 065

REACTIONS (9)
  - Bone marrow failure [Unknown]
  - Aspiration [Fatal]
  - Hypoglycaemia [Unknown]
  - Depressed level of consciousness [Unknown]
  - Inappropriate antidiuretic hormone secretion [Fatal]
  - Dyspnoea [Fatal]
  - Metabolic acidosis [Fatal]
  - Acute lung injury [Fatal]
  - Toxicity to various agents [Unknown]
